FAERS Safety Report 17591813 (Version 1)
Quarter: 2020Q1

REPORT INFORMATION
  Report Type: Report from Study
  Country: CA (occurrence: CA)
  Receive Date: 20200327
  Receipt Date: 20200327
  Transmission Date: 20200409
  Serious: Yes (Other)
  Sender: FDA-Public Use
  Company Number: CA-PFIZER INC-2020126058

PATIENT
  Age: 57 Year
  Sex: Female

DRUGS (14)
  1. METHOTREXATE SODIUM. [Suspect]
     Active Substance: METHOTREXATE SODIUM
  2. DIAZEPAM. [Suspect]
     Active Substance: DIAZEPAM
  3. FILGOTINIB [Suspect]
     Active Substance: FILGOTINIB
  4. VIT D [Concomitant]
     Active Substance: VITAMIN D NOS
  5. THALIDOMIDE [Suspect]
     Active Substance: THALIDOMIDE
  6. HYDROMORPHONE [Concomitant]
     Active Substance: HYDROMORPHONE
  7. ATIVAN [Concomitant]
     Active Substance: LORAZEPAM
  8. METHYLPREDNISOLONE SODIUM SUCCINATE. [Concomitant]
     Active Substance: METHYLPREDNISOLONE SODIUM SUCCINATE
  9. PREDNISONE. [Concomitant]
     Active Substance: PREDNISONE
  10. ACITRETIN. [Concomitant]
     Active Substance: ACITRETIN
  11. BELIMUMAB [Suspect]
     Active Substance: BELIMUMAB
  12. MYCOPHENOLATE MOFETIL. [Suspect]
     Active Substance: MYCOPHENOLATE MOFETIL
  13. SECUKINUMAB. [Suspect]
     Active Substance: SECUKINUMAB
  14. TACROLIMUS. [Suspect]
     Active Substance: TACROLIMUS

REACTIONS (24)
  - Blood potassium increased [Unknown]
  - Drug dependence [Unknown]
  - Dyslipidaemia [Unknown]
  - Herpes zoster [Unknown]
  - Red cell distribution width increased [Unknown]
  - Rhesus antigen positive [Unknown]
  - Blood creatinine increased [Unknown]
  - Blood immunoglobulin M decreased [Unknown]
  - Creatinine renal clearance decreased [Unknown]
  - Systemic lupus erythematosus [Unknown]
  - Blood albumin increased [Unknown]
  - Haematocrit decreased [Unknown]
  - Osteopenia [Unknown]
  - Drug ineffective [Unknown]
  - Glomerular filtration rate decreased [Unknown]
  - Protein urine present [Unknown]
  - Synovitis [Unknown]
  - Urinary tract infection [Unknown]
  - Vitamin D decreased [Unknown]
  - Atrial fibrillation [Unknown]
  - Mean cell haemoglobin increased [Unknown]
  - Blood immunoglobulin G decreased [Unknown]
  - Immunoglobulins decreased [Unknown]
  - White blood cell count decreased [Unknown]
